FAERS Safety Report 5208202-1 (Version None)
Quarter: 2007Q1

REPORT INFORMATION
  Report Type: 
  Country: None (occurrence: None)
  Receive Date: 20070115
  Receipt Date: 20070108
  Transmission Date: 20070707
  Serious: Yes (Hospitalization)
  Sender: FDA-Public Use
  Company Number: FR-GLAXOSMITHKLINE-B0453151A

PATIENT
  Age: 59 Year
  Sex: Female

DRUGS (4)
  1. LAMICTAL [Suspect]
     Route: 048
     Dates: start: 19970401
  2. LEVOTHYROXINE SODIUM [Suspect]
     Dosage: 1UNIT PER DAY
     Route: 048
     Dates: start: 19960501
  3. UN-ALPHA [Suspect]
     Dosage: 1UNIT PER DAY
     Route: 048
     Dates: start: 19960501
  4. TIRATRICOL [Suspect]
     Dosage: 1UNIT PER DAY
     Route: 048
     Dates: start: 19960501

REACTIONS (1)
  - PSEUDOLYMPHOMA [None]
